FAERS Safety Report 6086894-5 (Version None)
Quarter: 2009Q1

REPORT INFORMATION
  Report Type: 
  Country: None (occurrence: None)
  Receive Date: 20090223
  Receipt Date: 20090216
  Transmission Date: 20090719
  Serious: Yes (Hospitalization)
  Sender: FDA-Public Use
  Company Number: US-ASTRAZENECA-2009UW04317

PATIENT
  Age: 81 Year
  Sex: Female
  Weight: 74.8 kg

DRUGS (1)
  1. PULMICORT RESPULES [Suspect]
     Indication: CHRONIC OBSTRUCTIVE PULMONARY DISEASE
     Route: 055
     Dates: start: 20081224

REACTIONS (3)
  - CARDIAC DISORDER [None]
  - PNEUMONIA [None]
  - RENAL DISORDER [None]
